FAERS Safety Report 6327016-2 (Version None)
Quarter: 2009Q3

REPORT INFORMATION
  Report Type: 
  Country: None (occurrence: None)
  Receive Date: 20090821
  Receipt Date: 20090810
  Transmission Date: 20100115
  Serious: Yes (Disabling)
  Sender: FDA-Public Use
  Company Number: ADR12272009

PATIENT
  Age: 60 Year
  Sex: Female

DRUGS (3)
  1. PRAVASTATIN [Suspect]
     Indication: HYPERLIPIDAEMIA
     Dosage: 10MG ORAL
     Route: 048
     Dates: start: 20080311, end: 20080611
  2. GLUCOSAMINE [Concomitant]
  3. SIMVASTATIN [Concomitant]

REACTIONS (2)
  - ANXIETY [None]
  - PALPITATIONS [None]
